FAERS Safety Report 7529211-3 (Version None)
Quarter: 2011Q2

REPORT INFORMATION
  Report Type: 
  Country: None (occurrence: None)
  Receive Date: 20110607
  Receipt Date: 20050715
  Transmission Date: 20111010
  Serious: Yes (Hospitalization, Other)
  Sender: FDA-Public Use
  Company Number: PHFR2005GB02421

PATIENT
  Sex: Male

DRUGS (2)
  1. CLOZARIL [Suspect]
     Indication: SCHIZOPHRENIA
     Dosage: UNK, UNK
     Route: 048
     Dates: start: 20020723
  2. CLOZARIL [Suspect]
     Dosage: 350MG/DAY
     Route: 048
     Dates: start: 20050702

REACTIONS (2)
  - ANKLE FRACTURE [None]
  - CONFUSIONAL STATE [None]
